FAERS Safety Report 7739146-9 (Version None)
Quarter: 2011Q3

REPORT INFORMATION
  Report Type: 
  Country: None (occurrence: None)
  Receive Date: 20110906
  Receipt Date: 20110826
  Transmission Date: 20111222
  Serious: Yes (Other)
  Sender: FDA-Public Use
  Company Number: DKLU1072736

PATIENT
  Age: 50 Year
  Sex: Female

DRUGS (10)
  1. SABRIL [Suspect]
     Indication: TUBEROUS SCLEROSIS
     Dosage: ORAL
     Route: 048
     Dates: start: 20110819, end: 20110826
  2. SABRIL [Suspect]
     Indication: TUBEROUS SCLEROSIS
     Dosage: ORAL
     Route: 048
     Dates: start: 20110420, end: 20110701
  3. SABRIL [Suspect]
     Indication: TUBEROUS SCLEROSIS
     Dosage: ORAL
     Route: 048
     Dates: start: 20110701, end: 20110819
  4. SABRIL [Suspect]
     Indication: TUBEROUS SCLEROSIS
     Dosage: ORAL
     Route: 048
     Dates: start: 20110826
  5. PRAVASTATIN [Concomitant]
  6. KLONOPIN [Concomitant]
  7. COZAAR [Concomitant]
  8. LAMICTAL [Concomitant]
  9. TOPAMAX [Concomitant]
  10. DEPO-PROVERA [Concomitant]

REACTIONS (2)
  - BLINDNESS [None]
  - CONVULSION [None]
